FAERS Safety Report 4765233-3 (Version None)
Quarter: 2005Q3

REPORT INFORMATION
  Report Type: 
  Country: None (occurrence: None)
  Receive Date: 20050906
  Receipt Date: 20050823
  Transmission Date: 20060218
  Serious: Yes (Other)
  Sender: FDA-Public Use
  Company Number: EWC050845558

PATIENT
  Age: 29 Year
  Sex: Female

DRUGS (1)
  1. CYMBALTA [Suspect]
     Indication: DEPRESSION
     Dosage: 60 MG DAY
     Dates: start: 20050715

REACTIONS (5)
  - ANGINA PECTORIS [None]
  - CHEST DISCOMFORT [None]
  - CONSTIPATION [None]
  - HEADACHE [None]
  - PAIN IN EXTREMITY [None]
